FAERS Safety Report 6500916-6 (Version None)
Quarter: 2009Q4

REPORT INFORMATION
  Report Type: 
  Country: None (occurrence: None)
  Receive Date: 20091216
  Receipt Date: 20090420
  Transmission Date: 20100525
  Serious: No
  Sender: FDA-Public Use
  Company Number: A0779524A

PATIENT
  Age: 56 Year
  Sex: Female

DRUGS (1)
  1. COMMIT [Suspect]
     Dates: start: 20090416, end: 20090416

REACTIONS (2)
  - LACRIMATION INCREASED [None]
  - OROPHARYNGEAL BLISTERING [None]
